FAERS Safety Report 6400148-6 (Version None)
Quarter: 2009Q4

REPORT INFORMATION
  Report Type: 
  Country: None (occurrence: None)
  Receive Date: 20091014
  Receipt Date: 20091002
  Transmission Date: 20100525
  Serious: Yes (Life-Threatening, Hospitalization, Other)
  Sender: FDA-Public Use
  Company Number: DE-PFIZER INC-2009239090

PATIENT
  Age: 60 Year

DRUGS (8)
  1. SUTENT [Suspect]
     Indication: RENAL CELL CARCINOMA
     Dosage: 50 MG, 1X/DAY
     Route: 048
     Dates: start: 20090624, end: 20091002
  2. CARMEN [Concomitant]
  3. APROVEL [Concomitant]
     Dosage: 150 MG, UNK
  4. TORASEMIDE [Concomitant]
     Dosage: 10 MG, UNK
  5. MOXONIDINE [Concomitant]
     Dosage: 0.3 MG, UNK
  6. CARVEDILOL [Concomitant]
     Dosage: 25 MG, UNK
  7. ACTRAPID [Concomitant]
     Indication: DIABETES MELLITUS
  8. PROTAPHAN [Concomitant]
     Indication: DIABETES MELLITUS

REACTIONS (4)
  - BLOOD CREATININE INCREASED [None]
  - BLOOD GLUCOSE DECREASED [None]
  - CEREBROVASCULAR ACCIDENT [None]
  - HYPERTENSION [None]
